FAERS Safety Report 6785484-6 (Version None)
Quarter: 2010Q2

REPORT INFORMATION
  Report Type: 
  Country: None (occurrence: None)
  Receive Date: 20100623
  Receipt Date: 20100615
  Transmission Date: 20101027
  Serious: No
  Sender: FDA-Public Use
  Company Number: 2009BI034448

PATIENT
  Age: 45 Year
  Sex: Female

DRUGS (2)
  1. TYSABRI [Suspect]
     Indication: MULTIPLE SCLEROSIS
     Route: 042
     Dates: start: 20070322, end: 20070813
  2. TYSABRI [Suspect]
     Route: 042
     Dates: start: 20071011

REACTIONS (12)
  - ACUTE SINUSITIS [None]
  - ARTHRALGIA [None]
  - BACK PAIN [None]
  - DECREASED IMMUNE RESPONSIVENESS [None]
  - DEPRESSION [None]
  - DIARRHOEA [None]
  - DIZZINESS POSTURAL [None]
  - FATIGUE [None]
  - IRRITABLE BOWEL SYNDROME [None]
  - NASOPHARYNGITIS [None]
  - RASH [None]
  - VAGINAL INFECTION [None]
